FAERS Safety Report 7362752-0 (Version None)
Quarter: 2011Q1

REPORT INFORMATION
  Report Type: 
  Country: None (occurrence: None)
  Receive Date: 20110321
  Receipt Date: 20110311
  Transmission Date: 20110831
  Serious: No
  Sender: FDA-Public Use
  Company Number: US-BIOGENIDEC-2010BI030127

PATIENT
  Sex: Male

DRUGS (2)
  1. TYSABRI [Suspect]
     Indication: MULTIPLE SCLEROSIS
     Route: 042
     Dates: start: 20070730
  2. AMPYRA [Concomitant]
     Indication: PRODUCT USED FOR UNKNOWN INDICATION
     Dates: start: 20100518

REACTIONS (6)
  - ROAD TRAFFIC ACCIDENT [None]
  - MUSCLE SPASMS [None]
  - VISION BLURRED [None]
  - DRUG INEFFECTIVE [None]
  - STRESS [None]
  - OPTIC NERVE INJURY [None]
